FAERS Safety Report 4485224-X (Version None)
Quarter: 2004Q4

REPORT INFORMATION
  Report Type: 
  Country: None (occurrence: None)
  Receive Date: 20041026
  Receipt Date: 20040712
  Transmission Date: 20050328
  Serious: No
  Sender: FDA-Public Use
  Company Number: US-BRISTOL-MYERS SQUIBB COMPANY-12637633

PATIENT
  Age: 64 Year
  Sex: Male
  Weight: 125 kg

DRUGS (9)
  1. GLUCOPHAGE XR [Suspect]
     Indication: DIABETES MELLITUS
     Route: 048
  2. GLUCOPHAGE [Suspect]
     Indication: DIABETES MELLITUS
     Dosage: THERAPY FROM:  ^STARTED TAKING 2-3 YEARS AGO^
  3. INSULIN [Concomitant]
  4. AVANDIA [Concomitant]
  5. COZAAR [Concomitant]
  6. HYDROCHLOROTHIAZIDE [Concomitant]
  7. ASPIRIN [Concomitant]
  8. MECLIZINE [Concomitant]
  9. ZOCOR [Concomitant]

REACTIONS (1)
  - DIARRHOEA [None]
